FAERS Safety Report 9374616 (Version 1)
Quarter: 2013Q2

REPORT INFORMATION
  Report Type: Spontaneous
  Country: IT (occurrence: IT)
  Receive Date: 20130628
  Receipt Date: 20130628
  Transmission Date: 20140414
  Serious: Yes (Hospitalization)
  Sender: FDA-Public Use
  Company Number: IT-PFIZER INC-2013192154

PATIENT
  Age: 34 Year
  Sex: Female

DRUGS (1)
  1. TAZOCIN [Suspect]
     Dosage: 1 DF, DAILY
     Route: 030
     Dates: start: 20130523, end: 20130524

REACTIONS (2)
  - Abdominal pain [Unknown]
  - Diverticulitis [Unknown]
